FAERS Safety Report 4604569-3 (Version None)
Quarter: 2005Q2

REPORT INFORMATION
  Report Type: 
  Country: None (occurrence: None)
  Receive Date: 20050217
  Receipt Date: 20041230
  Transmission Date: 20051028
  Serious: No
  Sender: FDA-Public Use
  Company Number: S04-USA-08041-01

PATIENT
  Age: 79 Year
  Sex: Female

DRUGS (3)
  1. NAMENDA [Suspect]
     Indication: MEMORY IMPAIRMENT
     Dosage: 5 MG QD PO
     Route: 048
     Dates: start: 20041229
  2. BLOOD PRESSURE MEDICATION (NOS) [Concomitant]
  3. THYROID MEDICATION (NOS) [Concomitant]

REACTIONS (2)
  - ASTHENIA [None]
  - NERVOUSNESS [None]
